FAERS Safety Report 21806892 (Version 2)
Quarter: 2023Q2

REPORT INFORMATION
  Report Type: Report from Study
  Country: US (occurrence: US)
  Receive Date: 20230102
  Receipt Date: 20230413
  Transmission Date: 20230721
  Serious: No
  Sender: FDA-Public Use
  Company Number: US-ABBVIE-4223729

PATIENT
  Sex: Female

DRUGS (3)
  1. HUMIRA [Suspect]
     Active Substance: ADALIMUMAB
     Indication: Rheumatoid arthritis
     Dosage: CITRATE FREE, LAST ADMIN DATE-2022, FORM STRENGTH: 40 MILLIGRAM
     Route: 058
     Dates: start: 20220727
  2. HUMIRA [Suspect]
     Active Substance: ADALIMUMAB
     Dosage: CITRATE FREE, FORM STRENGTH: 40 MILLIGRAM
     Route: 058
     Dates: start: 20221013, end: 20221201
  3. HUMIRA [Suspect]
     Active Substance: ADALIMUMAB
     Dosage: CITRATE FREE, FORM STRENGTH: 40 MILLIGRAM
     Route: 058

REACTIONS (2)
  - Loss of personal independence in daily activities [Recovering/Resolving]
  - Drug ineffective [Unknown]
